FAERS Safety Report 19583687 (Version 1)
Quarter: 2021Q3

REPORT INFORMATION
  Report Type: Spontaneous
  Country: US (occurrence: US)
  Receive Date: 20210720
  Receipt Date: 20210720
  Transmission Date: 20211014
  Serious: No
  Sender: FDA-Public Use
  Company Number: US-INSMED, INC.-2021-08428-US

PATIENT
  Sex: Female

DRUGS (1)
  1. ARIKAYCE [Suspect]
     Active Substance: AMIKACIN
     Indication: PRODUCT USED FOR UNKNOWN INDICATION
     Dosage: 590 MILLIGRAM, QD
     Route: 055
     Dates: start: 20210414, end: 20210429

REACTIONS (8)
  - Burning sensation [Recovering/Resolving]
  - Vision blurred [Recovered/Resolved]
  - Skin exfoliation [Not Recovered/Not Resolved]
  - Dry eye [Not Recovered/Not Resolved]
  - Asthenopia [Not Recovered/Not Resolved]
  - Hyperhidrosis [Recovered/Resolved]
  - Intraocular pressure increased [Unknown]
  - Eye pain [Recovered/Resolved]

NARRATIVE: CASE EVENT DATE: 2021
